FAERS Safety Report 16337495 (Version 2)
Quarter: 2019Q2

REPORT INFORMATION
  Report Type: Spontaneous
  Country: US (occurrence: US)
  Receive Date: 20190521
  Receipt Date: 20190610
  Transmission Date: 20190711
  Serious: Yes (Other)
  Sender: FDA-Public Use
  Company Number: US-BAYER-2019-094778

PATIENT
  Age: 8 Year
  Sex: Female
  Weight: 85.71 kg

DRUGS (1)
  1. BAYER LOW DOSE [Suspect]
     Active Substance: ASPIRIN
     Indication: PYREXIA
     Dosage: UNK

REACTIONS (6)
  - Brain oedema [Unknown]
  - Product use in unapproved indication [Unknown]
  - Seizure [Unknown]
  - Influenza like illness [Unknown]
  - Malaise [None]
  - Reye^s syndrome [Unknown]

NARRATIVE: CASE EVENT DATE: 1981
